FAERS Safety Report 13355886 (Version 1)
Quarter: 2017Q1

REPORT INFORMATION
  Report Type: Spontaneous
  Country: AT (occurrence: AT)
  Receive Date: 20170321
  Receipt Date: 20170321
  Transmission Date: 20170429
  Serious: Yes (Hospitalization)
  Sender: FDA-Public Use
  Company Number: AT-ELI_LILLY_AND_COMPANY-AT201610001963

PATIENT
  Age: 90 Year
  Sex: Female

DRUGS (18)
  1. FLUOXETINE HYDROCHLORIDE. [Suspect]
     Active Substance: FLUOXETINE HYDROCHLORIDE
     Indication: PRODUCT USED FOR UNKNOWN INDICATION
     Dosage: UNK UNK, UNKNOWN
     Route: 065
     Dates: start: 2000
  2. AQUAPHORIL [Suspect]
     Active Substance: XIPAMIDE
     Indication: PRODUCT USED FOR UNKNOWN INDICATION
     Dosage: UNK, UNKNOWN
     Route: 048
     Dates: end: 20150219
  3. BLOPRESS [Suspect]
     Active Substance: CANDESARTAN CILEXETIL
     Indication: HYPERTENSION
     Dosage: UNK, UNKNOWN
     Route: 048
     Dates: end: 20150220
  4. LYRICA [Concomitant]
     Active Substance: PREGABALIN
     Dosage: 100 MG, QD
     Route: 048
     Dates: start: 20150207, end: 20150207
  5. LYRICA [Concomitant]
     Active Substance: PREGABALIN
     Dosage: 150 MG, QD
     Route: 048
     Dates: start: 20150208, end: 20150208
  6. LYRICA [Concomitant]
     Active Substance: PREGABALIN
     Dosage: 75 MG, QD
     Route: 048
     Dates: start: 20150210, end: 20150210
  7. ERECTIN (HOMEOPATHICS) [Suspect]
     Active Substance: HOMEOPATHICS
     Indication: PRODUCT USED FOR UNKNOWN INDICATION
     Dosage: 75 MG, QD
     Route: 048
     Dates: start: 20150126, end: 20150202
  8. ERECTIN (HOMEOPATHICS) [Suspect]
     Active Substance: HOMEOPATHICS
     Dosage: 150 MG, QD
     Route: 048
     Dates: start: 20150203, end: 20150210
  9. LYRICA [Concomitant]
     Active Substance: PREGABALIN
     Dosage: 150 MG, QD
     Route: 048
     Dates: start: 201501, end: 20150206
  10. LYRICA [Concomitant]
     Active Substance: PREGABALIN
     Dosage: 185 MG, QD
     Route: 048
     Dates: start: 20150209, end: 20150209
  11. ZANIDIP [Concomitant]
     Active Substance: LERCANIDIPINE HYDROCHLORIDE
     Dosage: 10 MG, QD
     Route: 048
     Dates: end: 20150221
  12. NEUROMULTIVIT [Concomitant]
     Active Substance: CYANOCOBALAMIN\PYRIDOXINE\THIAMINE
     Dosage: UNK
     Route: 065
     Dates: start: 201501
  13. EFFECTIN /00533902/ [Suspect]
     Active Substance: BITOLTEROL MESYLATE
     Indication: PRODUCT USED FOR UNKNOWN INDICATION
     Dosage: UNK, UNKNOWN
     Route: 065
  14. ZANIDIP [Concomitant]
     Active Substance: LERCANIDIPINE HYDROCHLORIDE
     Dosage: 20 MG, QD
     Route: 048
     Dates: start: 20150222
  15. TRITTICO [Suspect]
     Active Substance: TRAZODONE HYDROCHLORIDE
     Indication: PRODUCT USED FOR UNKNOWN INDICATION
     Dosage: UNK, UNKNOWN
     Route: 065
  16. AQUAPHORIL [Suspect]
     Active Substance: XIPAMIDE
     Dosage: UNK
  17. MYOCHOLINE [Concomitant]
     Active Substance: BETHANECHOL CHLORIDE
     Dosage: 20 MG, QD
     Route: 048
     Dates: start: 201501
  18. OLEOVIT                            /01371001/ [Concomitant]
     Dosage: 20 GTT, WEEKLY (1/W)
     Route: 065
     Dates: start: 201501

REACTIONS (1)
  - Hyponatraemia [Unknown]

NARRATIVE: CASE EVENT DATE: 2014
